FAERS Safety Report 20326750 (Version 1)
Quarter: 2022Q1

REPORT INFORMATION
  Report Type: Spontaneous
  Country: CN (occurrence: CN)
  Receive Date: 20220112
  Receipt Date: 20220112
  Transmission Date: 20220423
  Serious: Yes (Hospitalization)
  Sender: FDA-Public Use
  Company Number: CN-BAXTER-2022BAX000683

PATIENT
  Age: 28 Year
  Sex: Female
  Weight: 58 kg

DRUGS (6)
  1. CYCLOPHOSPHAMIDE [Suspect]
     Active Substance: CYCLOPHOSPHAMIDE
     Indication: Breast cancer in situ
     Dosage: CYCLOPHOSPHAMIDE 800 MG + 0.9% SODIUM CHLORIDE 250 ML
     Route: 041
     Dates: start: 20211128, end: 20211128
  2. CYCLOPHOSPHAMIDE [Suspect]
     Active Substance: CYCLOPHOSPHAMIDE
     Indication: Breast cancer recurrent
  3. SODIUM CHLORIDE [Suspect]
     Active Substance: SODIUM CHLORIDE
     Indication: Medication dilution
     Dosage: NS 250 ML WITH CYCLOPHOSPHAMIDE FOR INJECTION 800 MG
     Route: 041
     Dates: start: 20211128, end: 20211128
  4. SODIUM CHLORIDE [Suspect]
     Active Substance: SODIUM CHLORIDE
     Dosage: 0.9% SODIUM CHLORIDE INJECTION + DOCETAXEL 120 MG
     Route: 041
     Dates: start: 20211128, end: 20211128
  5. DOCETAXEL [Suspect]
     Active Substance: DOCETAXEL
     Indication: Breast cancer recurrent
     Dosage: NS 25 0ML WITH DOCETAXEL INJECTION 120 MG
     Route: 041
     Dates: start: 20211128, end: 20211128
  6. DOCETAXEL [Suspect]
     Active Substance: DOCETAXEL
     Indication: Breast cancer in situ

REACTIONS (1)
  - Myelosuppression [Recovering/Resolving]

NARRATIVE: CASE EVENT DATE: 20211217
